FAERS Safety Report 7650820-5 (Version None)
Quarter: 2011Q3

REPORT INFORMATION
  Report Type: 
  Country: None (occurrence: None)
  Receive Date: 20110802
  Receipt Date: 20110725
  Transmission Date: 20111222
  Serious: Yes (Other)
  Sender: FDA-Public Use
  Company Number: US-BAYER-2011-064868

PATIENT
  Sex: Female

DRUGS (4)
  1. YASMIN [Suspect]
  2. YASMIN [Suspect]
  3. YAZ [Suspect]
     Dosage: UNK
  4. DROSPIRENONE AND ETHINYL ESTRADIOL [Suspect]

REACTIONS (3)
  - COLON OPERATION [None]
  - MENSTRUAL DISORDER [None]
  - UNEVALUABLE EVENT [None]
